FAERS Safety Report 8310628-4 (Version None)
Quarter: 2012Q2

REPORT INFORMATION
  Report Type: 
  Country: None (occurrence: None)
  Receive Date: 20120425
  Receipt Date: 20120425
  Transmission Date: 20120825
  Serious: No
  Sender: FDA-Public Use
  Company Number: None

PATIENT
  Age: 73 Day
  Sex: Female
  Weight: 86.182 kg

DRUGS (2)
  1. PROMETHAZINE [Suspect]
     Indication: NAUSEA
     Dates: start: 20120423, end: 20120424
  2. PROMETHAZINE [Suspect]
     Indication: NAUSEA

REACTIONS (1)
  - GAIT DISTURBANCE [None]
